FAERS Safety Report 6541851-7 (Version None)
Quarter: 2010Q1

REPORT INFORMATION
  Report Type: 
  Country: None (occurrence: None)
  Receive Date: 20100119
  Receipt Date: 20100115
  Transmission Date: 20100710
  Serious: Yes (Death)
  Sender: FDA-Public Use
  Company Number: PHHY2009IE39332

PATIENT
  Sex: Male

DRUGS (4)
  1. CLOZARIL [Suspect]
     Indication: SCHIZOPHRENIA
     Dosage: UNK
     Route: 048
     Dates: start: 19950302
  2. CLOZARIL [Suspect]
     Dosage: 600 MG DAILY
     Route: 048
  3. ARIPIPRAZOLE [Concomitant]
     Dosage: 10 MG DAILY
     Route: 048
  4. ESCITALOPRAM [Concomitant]
     Dosage: 30 MG DAILY

REACTIONS (2)
  - COMPLETED SUICIDE [None]
  - DROWNING [None]
